FAERS Safety Report 9513305 (Version 1)
Quarter: 2013Q1

REPORT INFORMATION
  Report Type: Spontaneous
  Country: US (occurrence: None)
  Receive Date: 20130305
  Receipt Date: 20130305
  Transmission Date: 20140127
  Serious: Yes (Hospitalization, Other)
  Sender: FDA-Public Use
  Company Number: 163-21880-12021742

PATIENT
  Age: 77 Year
  Sex: Male

DRUGS (10)
  1. REVLIMID [Suspect]
     Indication: MYELOFIBROSIS
     Dosage: X 21 DAYS
     Route: 048
     Dates: start: 200909, end: 2012
  2. NEXIUM [Concomitant]
  3. METOPROLOL [Concomitant]
  4. DIOVAN [Concomitant]
  5. FLOMAX [Concomitant]
  6. LIPITOR [Concomitant]
  7. PREDNISONE [Concomitant]
  8. RECLOMIDE [Concomitant]
  9. TOPROL XL [Concomitant]
  10. HYDROCODONE-ACETAMINOPHEN [Concomitant]

REACTIONS (5)
  - Angina pectoris [None]
  - Infection [None]
  - White blood cell count decreased [None]
  - Red blood cell count decreased [None]
  - Neutropenia [None]
